FAERS Safety Report 18467233 (Version 1)
Quarter: 2020Q4

REPORT INFORMATION
  Report Type: Spontaneous
  Country: US (occurrence: US)
  Receive Date: 20201105
  Receipt Date: 20201105
  Transmission Date: 20210114
  Serious: Yes (Hospitalization)
  Sender: FDA-Public Use
  Company Number: US-IPSEN BIOPHARMACEUTICALS, INC.-2019-20500

PATIENT
  Age: 12 Year
  Sex: Female
  Weight: 37 kg

DRUGS (25)
  1. LEVETIRACETAM. [Concomitant]
     Active Substance: LEVETIRACETAM
     Indication: SEIZURE
     Route: 042
     Dates: start: 20150901
  2. MAGNESIUM [Concomitant]
     Active Substance: MAGNESIUM
     Indication: AUTOIMMUNE DISORDER
     Dates: start: 20150101
  3. LAMOTRIGINE. [Concomitant]
     Active Substance: LAMOTRIGINE
     Dates: start: 20170427
  4. IMMUNE GLOBULIN [Concomitant]
     Indication: AUTOIMMUNE ENCEPHALOPATHY
     Dosage: 2 DAYS EVERY 4 WEEKS
     Route: 042
     Dates: start: 20140612
  5. RANITIDINE. [Concomitant]
     Active Substance: RANITIDINE
     Indication: GASTROOESOPHAGEAL REFLUX DISEASE
     Dates: start: 20150101
  6. ONDANSETRON [Concomitant]
     Active Substance: ONDANSETRON
     Indication: NAUSEA
  7. MONTELUKAST [Concomitant]
     Active Substance: MONTELUKAST SODIUM
     Indication: RESPIRATORY FAILURE
     Dates: start: 20131210
  8. LACOSAMIDE. [Concomitant]
     Active Substance: LACOSAMIDE
     Indication: SEIZURE
     Dates: start: 20150517
  9. OXYBUTININ [Concomitant]
     Active Substance: OXYBUTYNIN
     Indication: NEUROGENIC BLADDER
     Dosage: 3-DAY PATCH
     Route: 062
     Dates: start: 20160101
  10. FLUTICASONE-SALMETEROL [Concomitant]
     Indication: RESPIRATORY FAILURE
     Dosage: 2 PUFF (INHALERS)
     Route: 055
     Dates: start: 20131211
  11. HYDROXYZINE HYDROCHLORIDE. [Concomitant]
     Active Substance: HYDROXYZINE HYDROCHLORIDE
     Indication: MUSCLE SPASMS
  12. LACOSAMIDE. [Concomitant]
     Active Substance: LACOSAMIDE
     Dates: start: 20150517
  13. MIDAZOLAM. [Concomitant]
     Active Substance: MIDAZOLAM
     Indication: SEIZURE
     Route: 045
     Dates: start: 20150901
  14. POTASSIUM [Concomitant]
     Active Substance: POTASSIUM
     Indication: AUTOIMMUNE DISORDER
     Dates: start: 20150101
  15. METHYLPREDNISOLONE. [Concomitant]
     Active Substance: METHYLPREDNISOLONE
     Indication: AUTOIMMUNE ENCEPHALOPATHY
     Dosage: 2 DAYS EVERY 4 WEEKS
     Route: 042
     Dates: start: 20140612
  16. LAMOTRIGINE. [Concomitant]
     Active Substance: LAMOTRIGINE
     Indication: SEIZURE
     Dates: start: 20170427
  17. ACETAMINOPHEN. [Concomitant]
     Active Substance: ACETAMINOPHEN
     Indication: ARTHRALGIA
  18. TOLTERODINE [Concomitant]
     Active Substance: TOLTERODINE
     Indication: NEUROGENIC BLADDER
     Dates: start: 20160414
  19. LANSOPRAZOLE. [Concomitant]
     Active Substance: LANSOPRAZOLE
     Indication: GASTROOESOPHAGEAL REFLUX DISEASE
     Dates: start: 20141214
  20. TRAZODONE [Concomitant]
     Active Substance: TRAZODONE HYDROCHLORIDE
     Indication: HYPERSOMNIA
     Dates: start: 20140131
  21. MIRALAX [Concomitant]
     Active Substance: POLYETHYLENE GLYCOL 3350
     Indication: CONSTIPATION
     Dates: start: 20150101
  22. LAMOTRIGINE. [Concomitant]
     Active Substance: LAMOTRIGINE
     Dates: start: 20170427
  23. DYSPORT [Suspect]
     Active Substance: ABOBOTULINUMTOXINA
     Indication: MUSCLE SPASTICITY
     Dosage: 200 IU
     Route: 030
     Dates: start: 20181228, end: 20181228
  24. TRIAMCINALONE [Concomitant]
     Active Substance: TRIAMCINOLONE
     Indication: ERYTHEMA
     Dosage: LOCAL APPLICATION
     Route: 061
     Dates: start: 20170101
  25. ALBUTEROL. [Concomitant]
     Active Substance: ALBUTEROL
     Indication: RESPIRATORY FAILURE
     Route: 055
     Dates: start: 20100101

REACTIONS (2)
  - Abdominal migraine [Recovered/Resolved]
  - Mental status changes [Recovered/Resolved]

NARRATIVE: CASE EVENT DATE: 20190606
